FAERS Safety Report 8112509-8 (Version None)
Quarter: 2012Q1

REPORT INFORMATION
  Report Type: 
  Country: None (occurrence: None)
  Receive Date: 20120203
  Receipt Date: 20120131
  Transmission Date: 20120608
  Serious: Yes (Other)
  Sender: FDA-Public Use
  Company Number: BR-PFIZER INC-2012021718

PATIENT
  Age: 27 Year
  Sex: Female
  Weight: 47 kg

DRUGS (2)
  1. LYRICA [Suspect]
     Indication: MIGRAINE
  2. LYRICA [Suspect]
     Indication: HEADACHE
     Dosage: 75 MG, 1X/DAY
     Route: 048
     Dates: start: 20110901, end: 20111201

REACTIONS (16)
  - BEDRIDDEN [None]
  - WEIGHT DECREASED [None]
  - CAPSULE PHYSICAL ISSUE [None]
  - EMOTIONAL DISORDER [None]
  - PAIN [None]
  - FEELING ABNORMAL [None]
  - NAUSEA [None]
  - SOMNOLENCE [None]
  - DIARRHOEA [None]
  - POOR QUALITY DRUG ADMINISTERED [None]
  - DEPRESSION [None]
  - IRRITABILITY [None]
  - PERFORMANCE FEAR [None]
  - FATIGUE [None]
  - VOMITING [None]
  - PRODUCT CONTAMINATION MICROBIAL [None]
